FAERS Safety Report 8578309-X (Version None)
Quarter: 2012Q3

REPORT INFORMATION
  Report Type: 
  Country: None (occurrence: None)
  Receive Date: 20120726
  Receipt Date: 20120711
  Transmission Date: 20120928
  Serious: Yes (Hospitalization)
  Sender: FDA-Public Use
  Company Number: JPI-P-022628

PATIENT
  Age: 75 Year
  Sex: Male

DRUGS (2)
  1. XYREM [Suspect]
     Indication: PRODUCT USED FOR UNKNOWN INDICATION
     Dosage: 9 GM (4.5 GM, 2 IN 1 D), ORAL (UNKNOWN), ORAL (4.5 GM FIRST DOSE/3.75 GM SECOND DOSE), ORAL
     Route: 048
     Dates: start: 20021001
  2. XYREM [Suspect]
     Indication: PRODUCT USED FOR UNKNOWN INDICATION
     Dosage: 9 GM (4.5 GM, 2 IN 1 D), ORAL (UNKNOWN), ORAL (4.5 GM FIRST DOSE/3.75 GM SECOND DOSE), ORAL
     Route: 048
     Dates: start: 20091015

REACTIONS (7)
  - RASH PRURITIC [None]
  - OSTEOMYELITIS [None]
  - HYPERSOMNIA [None]
  - DERMATITIS CONTACT [None]
  - HAEMORRHAGE [None]
  - CARDIAC FLUTTER [None]
  - EXPOSURE TO TOXIC AGENT [None]
